FAERS Safety Report 9083688 (Version 1)
Quarter: 2013Q1

REPORT INFORMATION
  Report Type: Spontaneous
  Country: US (occurrence: US)
  Receive Date: 20130130
  Receipt Date: 20130130
  Transmission Date: 20140127
  Serious: No
  Sender: FDA-Public Use
  Company Number: US-ABBOTT-12P-163-0984197-00

PATIENT
  Sex: Male
  Weight: 92.16 kg

DRUGS (5)
  1. HUMIRA [Suspect]
     Indication: COLITIS ULCERATIVE
     Dates: start: 201206
  2. ELAVIL [Concomitant]
     Indication: ANXIETY
  3. SULFASALAZINE [Concomitant]
     Indication: COLITIS ULCERATIVE
  4. ENTOCORT [Concomitant]
     Indication: COLITIS ULCERATIVE
  5. STRATTERA [Concomitant]
     Indication: ATTENTION DEFICIT/HYPERACTIVITY DISORDER

REACTIONS (2)
  - Fatigue [Not Recovered/Not Resolved]
  - Respiratory tract infection [Not Recovered/Not Resolved]
